FAERS Safety Report 4529332-3 (Version None)
Quarter: 2004Q4

REPORT INFORMATION
  Report Type: 
  Country: None (occurrence: None)
  Receive Date: 20041214
  Receipt Date: 20041201
  Transmission Date: 20050328
  Serious: Yes (Hospitalization, Disabling, Other)
  Sender: FDA-Public Use
  Company Number: 2004093945

PATIENT
  Age: 59 Year
  Sex: Male
  Weight: 68 kg

DRUGS (4)
  1. TAHOR (ATORVASTATIN) [Suspect]
     Indication: HYPERLIPIDAEMIA
     Dosage: 80 MG (80 MG, 1 IN 1 D), ORAL
     Route: 048
     Dates: start: 19980101, end: 20040101
  2. BISOPROLOL (BISOPROLOL) [Concomitant]
  3. BUFLOMEDIL [Concomitant]
  4. CLOPIDOGREL [Concomitant]

REACTIONS (2)
  - BLOOD CHOLESTEROL ABNORMAL [None]
  - TENDON RUPTURE [None]
